FAERS Safety Report 4581060-4 (Version None)
Quarter: 2005Q1

REPORT INFORMATION
  Report Type: 
  Country: None (occurrence: None)
  Receive Date: 20050127
  Receipt Date: 20040819
  Transmission Date: 20050727
  Serious: No
  Sender: FDA-Public Use
  Company Number: USA040876061

PATIENT
  Age: 20 Year
  Sex: Male

DRUGS (3)
  1. STRATTERA [Suspect]
     Indication: DISTURBANCE IN ATTENTION
     Dosage: 40 MG
     Dates: start: 20040401
  2. PROZAC [Suspect]
     Indication: DEPRESSION
  3. FLUOXETINE [Concomitant]

REACTIONS (5)
  - AGGRESSION [None]
  - DRUG INEFFECTIVE [None]
  - INSOMNIA [None]
  - MOOD SWINGS [None]
  - SKIN LACERATION [None]
